FAERS Safety Report 18069696 (Version 3)
Quarter: 2020Q4

REPORT INFORMATION
  Report Type: Spontaneous
  Country: DE (occurrence: DE)
  Receive Date: 20200726
  Receipt Date: 20201001
  Transmission Date: 20210113
  Serious: Yes (Congenital Anomaly, Other)
  Sender: FDA-Public Use
  Company Number: DE-BIOGEN-2020BI00901021

PATIENT

DRUGS (3)
  1. TYSABRI [Suspect]
     Active Substance: NATALIZUMAB
     Indication: MATERNAL EXPOSURE TIMING UNSPECIFIED
     Dosage: EVERY 4 TO 6 WEEKS
     Route: 064
  2. FOLIC ACID. [Concomitant]
     Active Substance: FOLIC ACID
     Indication: PROPHYLAXIS
     Route: 065
  3. ATORVASTATIN [Concomitant]
     Active Substance: ATORVASTATIN
     Indication: MATERNAL EXPOSURE DURING PREGNANCY
     Route: 065

REACTIONS (6)
  - Foetal exposure during pregnancy [Not Recovered/Not Resolved]
  - Respiratory tract malformation [Not Recovered/Not Resolved]
  - Cardiac malposition [Not Recovered/Not Resolved]
  - Congenital gastric anomaly [Not Recovered/Not Resolved]
  - Congenital diaphragmatic hernia [Not Recovered/Not Resolved]
  - Diaphragmatic injury [Not Recovered/Not Resolved]
